FAERS Safety Report 10262706 (Version 2)
Quarter: 2014Q2

REPORT INFORMATION
  Report Type: Report from Study
  Country: US (occurrence: US)
  Receive Date: 20140626
  Receipt Date: 20140626
  Transmission Date: 20141212
  Serious: Yes (Hospitalization, Other)
  Sender: FDA-Public Use
  Company Number: US-MYLANLABS-2013S1012527

PATIENT
  Age: 39 Year
  Sex: Male
  Weight: 72.58 kg

DRUGS (10)
  1. CLOZAPINE TABLETS [Suspect]
     Indication: SCHIZOPHRENIA
     Route: 048
     Dates: start: 20130402, end: 20130604
  2. CLOZAPINE TABLETS [Suspect]
     Indication: SCHIZOPHRENIA
     Route: 048
     Dates: start: 20130402, end: 20130604
  3. MULTIVITAMIN [Concomitant]
  4. COLACE [Concomitant]
  5. BENZOTROPINE [Concomitant]
  6. MIRTAZAPINE [Concomitant]
  7. TAMSULOSIN [Concomitant]
  8. MAALOX [Concomitant]
  9. LACTULOSE [Concomitant]
  10. HALDOL DECANOATE [Concomitant]
     Dosage: LAST GIVEN ON 24-MAY-2013
     Route: 030

REACTIONS (1)
  - Generalised tonic-clonic seizure [Recovered/Resolved]
